FAERS Safety Report 13347432 (Version 2)
Quarter: 2018Q4

REPORT INFORMATION
  Report Type: Spontaneous
  Country: CA (occurrence: CA)
  Receive Date: 20170317
  Receipt Date: 20181003
  Transmission Date: 20190204
  Serious: Yes (Other)
  Sender: FDA-Public Use
  Company Number: CA-SHIRE-CA201705873

PATIENT

DRUGS (9)
  1. VYVANSE [Suspect]
     Active Substance: LISDEXAMFETAMINE DIMESYLATE
     Indication: PRODUCT USED FOR UNKNOWN INDICATION
     Dosage: 10 MG, 1X/DAY:QD
     Route: 065
     Dates: start: 2014
  2. NICOTINE. [Suspect]
     Active Substance: NICOTINE
     Dosage: UNK
     Route: 065
     Dates: start: 2015
  3. BUPRENORPHINE AND NALOXONE [Suspect]
     Active Substance: BUPRENORPHINE\NALOXONE
     Dosage: 22 MG, 1X/DAY:QD
     Route: 065
     Dates: start: 2015
  4. DIAZEPAM. [Suspect]
     Active Substance: DIAZEPAM
     Indication: PRODUCT USED FOR UNKNOWN INDICATION
     Dosage: 40 MG, 1X/DAY:QD
     Route: 065
     Dates: start: 2014
  5. ABILIFY [Suspect]
     Active Substance: ARIPIPRAZOLE
     Indication: PRODUCT USED FOR UNKNOWN INDICATION
     Dosage: 5 MG, 1X/DAY:QD
     Route: 065
     Dates: start: 2014
  6. BUPRENORPHINE HCL [Suspect]
     Active Substance: BUPRENORPHINE HYDROCHLORIDE
     Indication: DRUG DEPENDENCE
     Dosage: 16 MG, 1X/DAY:QD
     Route: 065
     Dates: start: 2015, end: 2015
  7. BUPRENORPHINE AND NALOXONE [Suspect]
     Active Substance: BUPRENORPHINE\NALOXONE
     Indication: DRUG DEPENDENCE
     Dosage: 22 MG, 1X/DAY:QD
     Route: 060
     Dates: start: 201407
  8. NICOTINE. [Suspect]
     Active Substance: NICOTINE
     Indication: PRODUCT USED FOR UNKNOWN INDICATION
     Dosage: UNK, UNKNOWN
     Route: 065
  9. BUPRENORPHINE HCL [Suspect]
     Active Substance: BUPRENORPHINE HYDROCHLORIDE
     Dosage: 22 MG, 1X/DAY:QD
     Route: 065
     Dates: start: 2015

REACTIONS (5)
  - Transfusion [Recovered/Resolved]
  - Maternal exposure during pregnancy [Recovered/Resolved]
  - Rhesus incompatibility [Unknown]
  - Premature delivery [Recovered/Resolved]
  - Caesarean section [Unknown]

NARRATIVE: CASE EVENT DATE: 2015
